FAERS Safety Report 9077143 (Version 1)
Quarter: 2013Q1

REPORT INFORMATION
  Report Type: Report from Study
  Country: US (occurrence: US)
  Receive Date: 20130129
  Receipt Date: 20130129
  Transmission Date: 20140127
  Serious: No
  Sender: FDA-Public Use
  Company Number: US-ABBOTT-12P-163-0938790-00

PATIENT
  Age: 44 None
  Sex: Male

DRUGS (1)
  1. HUMIRA [Suspect]
     Indication: PSORIATIC ARTHROPATHY
     Dates: start: 201111

REACTIONS (4)
  - Rhinorrhoea [Unknown]
  - Drug dose omission [Unknown]
  - Nasopharyngitis [Unknown]
  - Influenza like illness [Unknown]
